FAERS Safety Report 4984363-4 (Version None)
Quarter: 2006Q2

REPORT INFORMATION
  Report Type: 
  Country: None (occurrence: None)
  Receive Date: 20060419
  Receipt Date: 20060327
  Transmission Date: 20061013
  Serious: Yes (Hospitalization)
  Sender: FDA-Public Use
  Company Number: JP200603006700

PATIENT
  Age: 61 Year
  Sex: Female
  Weight: 152 kg

DRUGS (6)
  1. HUMALOG MIX 50/50 [Suspect]
     Indication: DIABETES MELLITUS NON-INSULIN-DEPENDENT
     Dosage: SEE IMAGE
     Dates: start: 20050418, end: 20050812
  2. HUMALOG 50NPL (HUMALOG  50NPL/50L PEN) PEN DISPOSABLE [Concomitant]
  3. DOXAZOSIN MESYLATE [Concomitant]
  4. GASMOTIN (MOSAPRIDE CITRATE) [Concomitant]
  5. ANPLAG (SARPOGRELATE HYDROCHLORIDE) [Concomitant]
  6. DEPAS (ETIZOLAM) [Concomitant]

REACTIONS (2)
  - CARDIAC FAILURE [None]
  - CONDITION AGGRAVATED [None]
